FAERS Safety Report 21589605 (Version 1)
Quarter: 2022Q4

REPORT INFORMATION
  Report Type: Spontaneous
  Country: DE (occurrence: DE)
  Receive Date: 20221114
  Receipt Date: 20221114
  Transmission Date: 20230113
  Serious: Yes (Hospitalization)
  Sender: FDA-Public Use
  Company Number: None

PATIENT
  Age: 62 Year
  Sex: Female

DRUGS (16)
  1. CAPECITABINE [Suspect]
     Active Substance: CAPECITABINE
     Indication: Product used for unknown indication
     Dosage: 1200 MG/M2, LAST ON 24092020
  2. SPIRONOLACTONE [Suspect]
     Active Substance: SPIRONOLACTONE
     Indication: Product used for unknown indication
     Dosage: 25 MG, 1-0-0-0, TABLETS
  3. CHLORTHALIDONE [Suspect]
     Active Substance: CHLORTHALIDONE
     Indication: Product used for unknown indication
     Dosage: 25 MG, 1-0-0-0, TABLETS
  4. METAMIZOLE [Concomitant]
     Active Substance: METAMIZOLE
     Dosage: 500 MG, 1-1-1-1, DROPS
  5. RIFAXIMIN [Concomitant]
     Active Substance: RIFAXIMIN
     Dosage: 550 MG, 1-0-1-0, TABLET
  6. MORPHINE [Concomitant]
     Active Substance: MORPHINE
     Dosage: 5 MG/ML 2%, AS REQUIRED UP TO FOUR TIMES A DAY, DROP
  7. CARVEDILOL [Concomitant]
     Active Substance: CARVEDILOL
     Dosage: 12.5 MG, 1-0-1-0, TABLETS
  8. AMLODIPINE [Concomitant]
     Active Substance: AMLODIPINE BESYLATE
     Dosage: 5 MG, 1-0-0-0, TABLETS
  9. CANDESARTAN [Concomitant]
     Active Substance: CANDESARTAN
     Dosage: 32 MG, 1-0-0-0, TABLETS
  10. HERBALS\PLANTAGO OVATA SEED [Concomitant]
     Active Substance: HERBALS\PLANTAGO OVATA SEED
     Dosage: 1-1-0-0, SACHET
  11. LORAZEPAM [Concomitant]
     Active Substance: LORAZEPAM
     Dosage: 0.5 MG, 1-0-0-1, ORODISPERSIBLE TABLETS
  12. FLUOXETINE [Concomitant]
     Active Substance: FLUOXETINE HYDROCHLORIDE
     Dosage: 20 MG, 1-0-0-0, TABLETS
  13. NITRENDIPINE [Concomitant]
     Active Substance: NITRENDIPINE
     Dosage: 5 MG, AS REQUIRED, VIAL,  STRENGTH : 5MG/1ML ORAL SOLUTION
  14. MAGNESIUM ASPARTATE HYDROCHLORIDE [Concomitant]
     Active Substance: MAGNESIUM ASPARTATE HYDROCHLORIDE
     Dosage: 0-1-0-0, SACHET OF GRANULES
  15. PANTOPRAZOLE [Concomitant]
     Active Substance: PANTOPRAZOLE
     Dosage: 40 MG, 1-0-1-0, DROPS
  16. HALOPERIDOL [Concomitant]
     Active Substance: HALOPERIDOL
     Dosage: 3 GTT - 0.3MG, UP TO THREE TIMES A DAY AS REQUIRED, DROPS

REACTIONS (8)
  - Depressed level of consciousness [Unknown]
  - Hypotension [Unknown]
  - Cough [Unknown]
  - Dysarthria [Unknown]
  - Dehydration [Unknown]
  - Wheezing [Unknown]
  - Vomiting [Unknown]
  - General physical health deterioration [Unknown]
